FAERS Safety Report 9674843 (Version 3)
Quarter: 2013Q4

REPORT INFORMATION
  Report Type: Report from Study
  Country: US (occurrence: US)
  Receive Date: 20131107
  Receipt Date: 20131113
  Transmission Date: 20140711
  Serious: Yes (Other)
  Sender: FDA-Public Use
  Company Number: US-US-EMD SERONO, INC.-7223242

PATIENT
  Age: 22 Year
  Sex: Female

DRUGS (4)
  1. REBIF [Suspect]
     Indication: PRODUCT USED FOR UNKNOWN INDICATION
     Route: 058
     Dates: start: 20130626
  2. REBIF [Suspect]
     Route: 058
  3. REBIF [Suspect]
     Route: 058
     Dates: end: 201306
  4. REBIF [Suspect]
     Route: 058

REACTIONS (9)
  - Abortion spontaneous [Recovered/Resolved]
  - Suicidal ideation [Recovered/Resolved]
  - Depression [Recovering/Resolving]
  - Fatigue [Not Recovered/Not Resolved]
  - Influenza like illness [Not Recovered/Not Resolved]
  - Injection site swelling [Not Recovered/Not Resolved]
  - Injection site erythema [Not Recovered/Not Resolved]
  - Maternal exposure timing unspecified [Recovered/Resolved]
  - Inappropriate schedule of drug administration [Not Recovered/Not Resolved]
